FAERS Safety Report 9991309 (Version 1)
Quarter: 2014Q1

REPORT INFORMATION
  Report Type: Spontaneous
  Country: US (occurrence: US)
  Receive Date: 20140310
  Receipt Date: 20140310
  Transmission Date: 20141002
  Serious: No
  Sender: FDA-Public Use
  Company Number: US-ABBVIE-13P-163-1131768-00

PATIENT
  Age: 53 Year
  Sex: Male
  Weight: 95.34 kg

DRUGS (9)
  1. HUMIRA [Suspect]
     Indication: FIBROMYALGIA
     Dates: start: 201211, end: 20130726
  2. HUMIRA [Suspect]
     Indication: JOINT SWELLING
  3. HUMIRA [Suspect]
     Indication: JOINT STIFFNESS
  4. FLAXSEED OIL [Concomitant]
     Indication: ARTHRITIS
  5. PREDNISONE [Concomitant]
     Indication: ARTHRITIS
  6. LYRICA [Concomitant]
     Indication: PRODUCT USED FOR UNKNOWN INDICATION
  7. OMEPRAZOLE [Concomitant]
     Indication: GASTROOESOPHAGEAL REFLUX DISEASE
  8. MELOXICAM [Concomitant]
     Indication: PAIN
  9. CYCLOSPORINE [Concomitant]
     Indication: ARTHRITIS

REACTIONS (3)
  - Joint swelling [Not Recovered/Not Resolved]
  - Drug ineffective [Not Recovered/Not Resolved]
  - Joint stiffness [Not Recovered/Not Resolved]
